FAERS Safety Report 4689148-4 (Version None)
Quarter: 2005Q2

REPORT INFORMATION
  Report Type: 
  Country: None (occurrence: None)
  Receive Date: 20050613
  Receipt Date: 20050330
  Transmission Date: 20051028
  Serious: Yes (Hospitalization)
  Sender: FDA-Public Use
  Company Number: 2005CG00657

PATIENT
  Age: 25104 Day
  Sex: Male

DRUGS (3)
  1. NEXIUM [Suspect]
     Indication: PROPHYLAXIS
     Route: 048
     Dates: start: 20041201, end: 20050301
  2. AVLOCARDYL [Concomitant]
     Route: 048
  3. VITAMINES B1-B6 [Concomitant]
     Route: 048

REACTIONS (1)
  - GLOMERULONEPHRITIS [None]
